FAERS Safety Report 18711819 (Version 1)
Quarter: 2021Q1

REPORT INFORMATION
  Report Type: Spontaneous
  Country: US (occurrence: US)
  Receive Date: 20210107
  Receipt Date: 20210107
  Transmission Date: 20210419
  Serious: No
  Sender: FDA-Public Use
  Company Number: None

PATIENT
  Age: 68 Year
  Weight: 50.35 kg

DRUGS (1)
  1. BOSENTAN 125MG [Suspect]
     Active Substance: BOSENTAN
     Indication: PULMONARY ARTERIAL HYPERTENSION
     Route: 048
     Dates: start: 20190723

REACTIONS (2)
  - Device related infection [None]
  - Dialysis [None]

NARRATIVE: CASE EVENT DATE: 20210105
